FAERS Safety Report 11248221 (Version 5)
Quarter: 2015Q4

REPORT INFORMATION
  Report Type: Report from Study
  Country: JP (occurrence: JP)
  Receive Date: 20150708
  Receipt Date: 20151230
  Transmission Date: 20160304
  Serious: Yes (Hospitalization)
  Sender: FDA-Public Use
  Company Number: JP-EISAI MEDICAL RESEARCH-EC-2015-008242

PATIENT
  Age: 78 Year
  Sex: Female

DRUGS (11)
  1. MS CONTIN [Concomitant]
     Active Substance: MORPHINE SULFATE
  2. LEVOTHYROXINE SODIUM HYDRATE [Concomitant]
  3. LENVIMA [Suspect]
     Active Substance: LENVATINIB
     Route: 048
     Dates: start: 20150630, end: 20150701
  4. BESOFTEN [Concomitant]
     Active Substance: SODIUM ALGINATE
  5. REBAMIPIDE [Concomitant]
     Active Substance: REBAMIPIDE
  6. LENVIMA [Suspect]
     Active Substance: LENVATINIB
     Indication: ANAPLASTIC THYROID CANCER
     Route: 048
     Dates: start: 20150601, end: 20150629
  7. THYRADIN [Concomitant]
     Active Substance: LEVOTHYROXINE
  8. SODIUM PICOSULFATE HYDRATE [Concomitant]
  9. CALCIUM LACTATE AND PREPARATIONS [Concomitant]
  10. BROTIZOLAM [Concomitant]
     Active Substance: BROTIZOLAM
  11. MAGLAX [Concomitant]
     Active Substance: MAGNESIUM OXIDE

REACTIONS (3)
  - Pancytopenia [Recovered/Resolved]
  - Vomiting [Recovered/Resolved]
  - Amyloidosis [Recovering/Resolving]

NARRATIVE: CASE EVENT DATE: 20150629
